FAERS Safety Report 4440774-7 (Version None)
Quarter: 2004Q3

REPORT INFORMATION
  Report Type: 
  Country: None (occurrence: None)
  Receive Date: 20040824
  Receipt Date: 20040809
  Transmission Date: 20050211
  Serious: Yes (Other)
  Sender: FDA-Public Use
  Company Number: 2250051-2004-00331

PATIENT
  Age: 56 Year
  Sex: Female

DRUGS (1)
  1. RHOGAM [Suspect]
     Indication: ISOIMMUNE HAEMOLYTIC DISEASE
     Dosage: 300 UG 1X IM
     Route: 030

REACTIONS (1)
  - METAL POISONING [None]
